FAERS Safety Report 16819457 (Version 2)
Quarter: 2019Q3

REPORT INFORMATION
  Report Type: Spontaneous
  Country: US (occurrence: US)
  Receive Date: 20190917
  Receipt Date: 20190926
  Transmission Date: 20191005
  Serious: No
  Sender: FDA-Public Use
  Company Number: US-TEVA-2019-US-1107380

PATIENT
  Sex: Female

DRUGS (1)
  1. ACTIQ [Suspect]
     Active Substance: FENTANYL CITRATE
     Indication: NEOPLASM MALIGNANT
     Route: 065
     Dates: start: 20181023

REACTIONS (3)
  - Pain [Unknown]
  - Feeling abnormal [Unknown]
  - Product dose omission [Unknown]
